FAERS Safety Report 7835622-9 (Version None)
Quarter: 2011Q4

REPORT INFORMATION
  Report Type: 
  Country: None (occurrence: None)
  Receive Date: 20111024
  Receipt Date: 20111017
  Transmission Date: 20120403
  Serious: Yes (Hospitalization)
  Sender: FDA-Public Use
  Company Number: IT-ASTRAZENECA-2011SE58316

PATIENT
  Age: 18973 Day
  Sex: Female

DRUGS (2)
  1. SEROQUEL [Suspect]
     Route: 048
     Dates: start: 20110624, end: 20110624
  2. SEROQUEL [Suspect]
     Indication: DRUG ADMINISTRATION ERROR
     Route: 048

REACTIONS (3)
  - ASTHENIA [None]
  - ACCIDENTAL EXPOSURE [None]
  - HYPOTENSION [None]
